FAERS Safety Report 7532737-X (Version None)
Quarter: 2011Q2

REPORT INFORMATION
  Report Type: 
  Country: None (occurrence: None)
  Receive Date: 20110608
  Receipt Date: 20110520
  Transmission Date: 20111010
  Serious: Yes (Hospitalization, Congenital Anomaly)
  Sender: FDA-Public Use
  Company Number: A0930299A

PATIENT
  Sex: Male

DRUGS (1)
  1. PAXIL [Suspect]
     Route: 064

REACTIONS (11)
  - CONGENITAL MUSCULOSKELETAL ANOMALY [None]
  - ATRIAL SEPTAL DEFECT [None]
  - GENITALIA EXTERNAL AMBIGUOUS [None]
  - CARDIAC ANEURYSM [None]
  - CONGENITAL GENITOURINARY ABNORMALITY [None]
  - DRUG EXPOSURE DURING PREGNANCY [None]
  - HYDRONEPHROSIS [None]
  - ORCHIDOPEXY [None]
  - DYSMORPHISM [None]
  - LIMB ASYMMETRY [None]
  - PECTUS EXCAVATUM [None]
